FAERS Safety Report 25349363 (Version 1)
Quarter: 2025Q2

REPORT INFORMATION
  Report Type: Report from Study
  Country: US (occurrence: US)
  Receive Date: 20250522
  Receipt Date: 20250522
  Transmission Date: 20250716
  Serious: Yes (Hospitalization, Other)
  Sender: MALLINCKRODT
  Company Number: US-MALLINCKRODT-MNK202501481

PATIENT
  Age: 77 Year
  Sex: Female

DRUGS (4)
  1. CORTICOTROPIN [Suspect]
     Active Substance: CORTICOTROPIN
     Indication: Iridocyclitis
     Dosage: 40 UNITS
     Route: 058
     Dates: start: 20221017
  2. CORTICOTROPIN [Suspect]
     Active Substance: CORTICOTROPIN
     Dosage: 80 UNITS
  3. MORPHINE [Suspect]
     Active Substance: MORPHINE
     Indication: Arthralgia
  4. PREDNISONE [Concomitant]
     Active Substance: PREDNISONE

REACTIONS (14)
  - Loss of consciousness [Unknown]
  - Ocular sarcoidosis [Unknown]
  - Pneumonia [Recovering/Resolving]
  - Bone pain [Unknown]
  - Pain in extremity [Unknown]
  - Arthritis [Unknown]
  - Limb discomfort [Unknown]
  - Musculoskeletal chest pain [Unknown]
  - Skin discolouration [Unknown]
  - Skin texture abnormal [Unknown]
  - Dyspnoea [Not Recovered/Not Resolved]
  - Muscle spasms [Recovering/Resolving]
  - Fatigue [Unknown]
  - Underdose [Unknown]

NARRATIVE: CASE EVENT DATE: 20250501
